FAERS Safety Report 9470303 (Version 2)
Quarter: 2013Q3

REPORT INFORMATION
  Report Type: Spontaneous
  Country: JP (occurrence: None)
  Receive Date: 20130815
  Receipt Date: 20130829
  Transmission Date: 20140515
  Serious: Yes (Hospitalization)
  Sender: FDA-Public Use
  Company Number: TCI2013A04878

PATIENT
  Age: 71 Year
  Sex: Male

DRUGS (7)
  1. ACTOS [Suspect]
     Indication: DIABETES MELLITUS
     Route: 048
     Dates: start: 20120113, end: 20130412
  2. BASEN OD TABLETS 0.3 (VOGLIBOSE) [Concomitant]
  3. OLMETEC (OLMESARTAN MEDOXOIL) [Concomitant]
  4. CALBLOCK (AZELNIDIPINE) [Concomitant]
  5. FLUITRAN (TRICHLORMETHIAZIDE) [Concomitant]
  6. CRESTOR (ROSUVASTATIN CALCIUM) [Concomitant]
  7. LENDORMIN D (BORTIZOLAM) [Concomitant]

REACTIONS (1)
  - Ureteric cancer [None]
